FAERS Safety Report 24383665 (Version 1)
Quarter: 2024Q4

REPORT INFORMATION
  Report Type: Spontaneous
  Country: FR (occurrence: FR)
  Receive Date: 20241001
  Receipt Date: 20241001
  Transmission Date: 20250115
  Serious: Yes (Hospitalization)
  Sender: BIOGEN
  Company Number: None

PATIENT
  Age: 61 Year
  Sex: Female
  Weight: 63 kg

DRUGS (1)
  1. TECFIDERA [Suspect]
     Active Substance: DIMETHYL FUMARATE
     Indication: Multiple sclerosis
     Dosage: 1 CAPSULE TWICE A DAY
     Route: 050
     Dates: start: 201711

REACTIONS (1)
  - Gastrointestinal stromal tumour [Recovered/Resolved]

NARRATIVE: CASE EVENT DATE: 20221110
